FAERS Safety Report 23630393 (Version 2)
Quarter: 2024Q1

REPORT INFORMATION
  Report Type: Spontaneous
  Country: US (occurrence: US)
  Receive Date: 20240314
  Receipt Date: 20240328
  Transmission Date: 20240410
  Serious: No
  Sender: FDA-Public Use
  Company Number: US-CTI BIOPHARMA-2024US04422

PATIENT
  Age: 59 Year
  Sex: Male

DRUGS (1)
  1. VONJO [Suspect]
     Active Substance: PACRITINIB
     Indication: Myelofibrosis
     Dosage: 200 MG, BID
     Route: 048
     Dates: start: 20231010

REACTIONS (5)
  - Anaemia [Unknown]
  - Haemoglobin decreased [Recovering/Resolving]
  - Platelet count increased [Unknown]
  - White blood cell count decreased [Recovering/Resolving]
  - Loss of personal independence in daily activities [Unknown]
